FAERS Safety Report 9870502 (Version 1)
Quarter: 2014Q1

REPORT INFORMATION
  Report Type: Spontaneous
  Country: TH (occurrence: TH)
  Receive Date: 20140205
  Receipt Date: 20140205
  Transmission Date: 20141002
  Serious: Yes (Hospitalization)
  Sender: FDA-Public Use
  Company Number: TH-SA-2014SA012449

PATIENT
  Age: 4 Year
  Sex: Male
  Weight: 22 kg

DRUGS (8)
  1. THYMOGLOBULIN [Suspect]
     Indication: STEM CELL TRANSPLANT
     Route: 042
     Dates: start: 20140124, end: 20140127
  2. CLOFARABINE [Suspect]
     Indication: CHEMOTHERAPY
     Route: 042
     Dates: start: 20140119, end: 20140120
  3. DILANTIN [Suspect]
     Indication: CONVULSION PROPHYLAXIS
     Route: 042
     Dates: start: 20140120, end: 20140121
  4. BUSULFAN [Suspect]
     Indication: CHEMOTHERAPY
     Route: 042
     Dates: start: 20140121, end: 20140122
  5. PARACETAMOL [Concomitant]
     Indication: PREMEDICATION
     Dosage: DOSE: 500 MG; 1 TEASPPON
     Route: 048
     Dates: start: 201401
  6. CHLORPHENIRAMINE [Concomitant]
     Indication: PREMEDICATION
     Route: 042
     Dates: start: 201401
  7. METHYLPREDNISOLONE [Concomitant]
     Indication: PREMEDICATION
     Route: 042
     Dates: start: 201401
  8. HYDROCORTISONE [Concomitant]
     Indication: PREMEDICATION
     Route: 041
     Dates: start: 201401

REACTIONS (2)
  - Erythema [Recovered/Resolved]
  - Rash [Recovered/Resolved]
